FAERS Safety Report 5794556-4 (Version None)
Quarter: 2008Q2

REPORT INFORMATION
  Report Type: 
  Country: None (occurrence: None)
  Receive Date: 20080625
  Receipt Date: 20080617
  Transmission Date: 20081010
  Serious: Yes (Hospitalization)
  Sender: FDA-Public Use
  Company Number: GXKR2008FR04848

PATIENT
  Age: 79 Year
  Sex: Female

DRUGS (5)
  1. CHOLESTYRAMINE [Suspect]
     Indication: PRURITUS
     Dosage: 4 G/ DAY, ORAL
     Route: 048
  2. OMEPRAZOLE [Suspect]
     Indication: PROPHYLAXIS
     Dosage: 20 MG/ DAY
  3. OCTREOTIDE (NGX) (OCTREOTIDE) UNKNOWN [Suspect]
     Indication: PROPHYLAXIS
     Dosage: 300 UG/ DAY
  4. PANTOPRAZOLE (NGX) (PANTOPRAZOLE) UNKNOWN [Suspect]
     Indication: UPPER GASTROINTESTINAL HAEMORRHAGE
     Dosage: 100 MG/DAY
  5. LACTULOSE [Concomitant]

REACTIONS (6)
  - ASPIRATION [None]
  - ASPIRATION TRACHEAL [None]
  - BEZOAR [None]
  - INTESTINAL OBSTRUCTION [None]
  - MECHANICAL VENTILATION [None]
  - RESPIRATORY DISTRESS [None]
